FAERS Safety Report 25412067 (Version 1)
Quarter: 2025Q2

REPORT INFORMATION
  Report Type: Spontaneous
  Country: FR (occurrence: FR)
  Receive Date: 20250609
  Receipt Date: 20250609
  Transmission Date: 20250717
  Serious: Yes (Other)
  Sender: MYLAN
  Company Number: FR-MYLANLABS-2025M1047313

PATIENT
  Sex: Male

DRUGS (24)
  1. PREDNISONE [Suspect]
     Active Substance: PREDNISONE
     Indication: Respiratory distress
  2. PREDNISONE [Suspect]
     Active Substance: PREDNISONE
  3. PREDNISONE [Suspect]
     Active Substance: PREDNISONE
     Route: 048
  4. PREDNISONE [Suspect]
     Active Substance: PREDNISONE
     Route: 048
  5. PREDNISONE [Suspect]
     Active Substance: PREDNISONE
     Dosage: 0.7 MILLIGRAM/KILOGRAM, QD
     Dates: start: 2014, end: 201408
  6. PREDNISONE [Suspect]
     Active Substance: PREDNISONE
     Dosage: 0.7 MILLIGRAM/KILOGRAM, QD
     Dates: start: 2014, end: 201408
  7. PREDNISONE [Suspect]
     Active Substance: PREDNISONE
     Dosage: 0.7 MILLIGRAM/KILOGRAM, QD
     Route: 048
     Dates: start: 2014, end: 201408
  8. PREDNISONE [Suspect]
     Active Substance: PREDNISONE
     Dosage: 0.7 MILLIGRAM/KILOGRAM, QD
     Route: 048
     Dates: start: 2014, end: 201408
  9. AZATHIOPRINE [Suspect]
     Active Substance: AZATHIOPRINE
     Indication: Cystoid macular oedema
     Dosage: 50 MILLIGRAM, QD; THERAPY CONTINUED THEN STOPPED
     Dates: start: 201312, end: 201609
  10. AZATHIOPRINE [Suspect]
     Active Substance: AZATHIOPRINE
     Dosage: 50 MILLIGRAM, QD; THERAPY CONTINUED THEN STOPPED
     Route: 065
     Dates: start: 201312, end: 201609
  11. AZATHIOPRINE [Suspect]
     Active Substance: AZATHIOPRINE
     Dosage: 50 MILLIGRAM, QD; THERAPY CONTINUED THEN STOPPED
     Route: 065
     Dates: start: 201312, end: 201609
  12. AZATHIOPRINE [Suspect]
     Active Substance: AZATHIOPRINE
     Dosage: 50 MILLIGRAM, QD; THERAPY CONTINUED THEN STOPPED
     Dates: start: 201312, end: 201609
  13. INTERFERON ALFA NOS [Concomitant]
     Active Substance: INTERFERON ALFA-2A OR INTERFERON ALFA-2B
     Indication: Cystoid macular oedema
  14. INTERFERON ALFA NOS [Concomitant]
     Active Substance: INTERFERON ALFA-2A OR INTERFERON ALFA-2B
     Route: 058
  15. INTERFERON ALFA NOS [Concomitant]
     Active Substance: INTERFERON ALFA-2A OR INTERFERON ALFA-2B
     Route: 058
  16. INTERFERON ALFA NOS [Concomitant]
     Active Substance: INTERFERON ALFA-2A OR INTERFERON ALFA-2B
  17. BRINZOLAMIDE [Concomitant]
     Active Substance: BRINZOLAMIDE
     Indication: Cystoid macular oedema
     Dosage: 3 DROP, QD; 3 DROPS PER DAY IN EACH EYE
     Dates: start: 2015
  18. BRINZOLAMIDE [Concomitant]
     Active Substance: BRINZOLAMIDE
     Dosage: 3 DROP, QD; 3 DROPS PER DAY IN EACH EYE
     Route: 065
     Dates: start: 2015
  19. BRINZOLAMIDE [Concomitant]
     Active Substance: BRINZOLAMIDE
     Dosage: 3 DROP, QD; 3 DROPS PER DAY IN EACH EYE
     Route: 065
     Dates: start: 2015
  20. BRINZOLAMIDE [Concomitant]
     Active Substance: BRINZOLAMIDE
     Dosage: 3 DROP, QD; 3 DROPS PER DAY IN EACH EYE
     Dates: start: 2015
  21. HYDROCORTISONE [Concomitant]
     Active Substance: HYDROCORTISONE
     Indication: Cystoid macular oedema
     Dosage: 10 MILLIGRAM, QD
     Dates: start: 201408, end: 201408
  22. HYDROCORTISONE [Concomitant]
     Active Substance: HYDROCORTISONE
     Dosage: 10 MILLIGRAM, QD
     Route: 065
     Dates: start: 201408, end: 201408
  23. HYDROCORTISONE [Concomitant]
     Active Substance: HYDROCORTISONE
     Dosage: 10 MILLIGRAM, QD
     Route: 065
     Dates: start: 201408, end: 201408
  24. HYDROCORTISONE [Concomitant]
     Active Substance: HYDROCORTISONE
     Dosage: 10 MILLIGRAM, QD
     Dates: start: 201408, end: 201408

REACTIONS (4)
  - Growth retardation [Unknown]
  - Neuropsychological symptoms [Unknown]
  - Cushingoid [Unknown]
  - Off label use [Unknown]

NARRATIVE: CASE EVENT DATE: 20140101
